FAERS Safety Report 20033495 (Version 5)
Quarter: 2022Q2

REPORT INFORMATION
  Report Type: Report from Study
  Country: DE (occurrence: DE)
  Receive Date: 20211104
  Receipt Date: 20220624
  Transmission Date: 20220720
  Serious: Yes (Death, Life-Threatening, Hospitalization, Other)
  Sender: FDA-Public Use
  Company Number: DE-BRISTOL-MYERS SQUIBB COMPANY-BMS-2021-023971

PATIENT
  Age: 59 Year
  Sex: Male
  Weight: 85 kg

DRUGS (31)
  1. ELOTUZUMAB [Suspect]
     Active Substance: ELOTUZUMAB
     Indication: Plasma cell myeloma
     Dosage: 870 MILLIGRAM (10MG/KG)
     Route: 042
     Dates: start: 20210226, end: 20210929
  2. ELOTUZUMAB [Suspect]
     Active Substance: ELOTUZUMAB
     Route: 041
     Dates: start: 20210519, end: 20210929
  3. ELOTUZUMAB [Suspect]
     Active Substance: ELOTUZUMAB
     Dosage: 1023 MILLIGRAMS / DAY (1023 MILLIGRAMS, CYCLICAL)
     Route: 041
     Dates: start: 20210226, end: 20210610
  4. ELOTUZUMAB [Suspect]
     Active Substance: ELOTUZUMAB
     Dosage: 870 MILLIGRAMS / DAY (870 MILLIGRAMS, CYCLICAL)
     Route: 041
     Dates: start: 20210519, end: 20210929
  5. LENALIDOMIDE [Suspect]
     Active Substance: LENALIDOMIDE
     Indication: Plasma cell myeloma
     Dosage: 15 MILLIGRAM/DAY (25 MG, CYCLICAL)
     Route: 048
     Dates: start: 20210226, end: 20211005
  6. LENALIDOMIDE [Suspect]
     Active Substance: LENALIDOMIDE
     Dosage: 25 MILLIGRAMS / DAY (25 MILLIGRAMS, CYCLICAL)
     Route: 048
     Dates: start: 20210226, end: 20210318
  7. LENALIDOMIDE [Suspect]
     Active Substance: LENALIDOMIDE
     Dosage: 15 MILLIGRAMS / DAY (15 MILLIGRAMS, CYCLICAL),25 MILLIGRAM IN CYCLICAL
     Route: 048
     Dates: start: 20210420, end: 20210510
  8. LENALIDOMIDE [Suspect]
     Active Substance: LENALIDOMIDE
     Dosage: 10 MILLIGRAMS / DAY (10 MILLIGRAMS, CYCLICAL),25 MILLIGRAM IN CYCLICAL // 10 MILLIGRAM
     Route: 048
     Dates: start: 20210519, end: 20210608
  9. LENALIDOMIDE [Suspect]
     Active Substance: LENALIDOMIDE
     Dosage: 15 MILLIGRAMS / DAY (15 MILLIGRAMS, CYCLICAL)
     Route: 048
     Dates: start: 20210721, end: 20211005
  10. CARFILZOMIB [Suspect]
     Active Substance: CARFILZOMIB
     Indication: Plasma cell myeloma
     Dosage: 75 MILLIGRAM (36MG/M2, CYCLICAL)
     Route: 042
     Dates: start: 20210226, end: 20210930
  11. DEXAMETHASONE [Suspect]
     Active Substance: DEXAMETHASONE
     Indication: Plasma cell myeloma
     Dosage: 40 MILLIGRAM, CYCLICAL (28 MILLIGRAM IN CYCLICAL )
     Route: 048
     Dates: start: 20210226, end: 20211005
  12. DEXAMETHASONE [Suspect]
     Active Substance: DEXAMETHASONE
     Dosage: 8 MILLIGRAMS / DAY (8 MILLIGRAMS, CYCLICAL)
     Route: 040
     Dates: start: 20210226, end: 20210929
  13. DEXAMETHASONE [Suspect]
     Active Substance: DEXAMETHASONE
     Dosage: 28 MILLIGRAMS / DAY (28 MILLIGRAMS, CYCLICAL
     Route: 048
     Dates: start: 20210226
  14. DEXAMETHASONE [Suspect]
     Active Substance: DEXAMETHASONE
     Dosage: 40 MILLIGRAMS / DAY (40 MILLIGRAMS, CYCLICAL)
     Route: 048
     Dates: start: 20210318, end: 20210929
  15. MELPHALAN [Suspect]
     Active Substance: MELPHALAN
     Indication: Product used for unknown indication
     Dosage: HIGH DOSE THERAPY,200 MILLIGRAM IN CYCLICAL // 200 MILLIGRAM
     Route: 042
     Dates: start: 20211015, end: 20211016
  16. KYPROLIS [Suspect]
     Active Substance: CARFILZOMIB
     Indication: Plasma cell myeloma
     Dosage: 75 MILLIGRAM
     Route: 041
     Dates: start: 20210519, end: 20210930
  17. KYPROLIS [Suspect]
     Active Substance: CARFILZOMIB
     Dosage: 36 MG/M2
     Route: 041
     Dates: start: 20210226, end: 20210930
  18. KYPROLIS [Suspect]
     Active Substance: CARFILZOMIB
     Dosage: 44.1 MILLIGRAMS / DAY (20 MILLIGRAMS/M? CYCLICAL)
     Route: 041
     Dates: start: 20210226, end: 20210312
  19. KYPROLIS [Suspect]
     Active Substance: CARFILZOMIB
     Dosage: 80.0 MILLIGRAMS / DAY (36 MILLIGRAMS/M?, CYCLICAL)
     Route: 041
     Dates: start: 20210420, end: 20210505
  20. KYPROLIS [Suspect]
     Active Substance: CARFILZOMIB
     Dosage: 75.0 MILLIGRAMS / DAY (36 MILLIGRAMS/M?, CYCLICAL)
     Route: 041
     Dates: start: 20210519, end: 20210930
  21. GANCICLOVIR [Concomitant]
     Active Substance: GANCICLOVIR
     Indication: Cytomegalovirus infection
     Dosage: 196 MILLIGRAM
     Route: 042
     Dates: start: 20101021
  22. ACYCLOVIR [Concomitant]
     Active Substance: ACYCLOVIR
     Indication: Infection prophylaxis
     Dosage: 2 X 400 MILLIGRAM IN 1 DAY
     Route: 048
     Dates: start: 20210210
  23. LEVOFLOXACIN [Concomitant]
     Active Substance: LEVOFLOXACIN
     Indication: Infection prophylaxis
     Dosage: 1X500 MG, 1 IN DAY
     Route: 048
     Dates: start: 20211020
  24. NEULASTA [Concomitant]
     Active Substance: PEGFILGRASTIM
     Indication: Febrile neutropenia
     Route: 058
     Dates: start: 20211025, end: 20211025
  25. PEGFILGRASTIM [Concomitant]
     Active Substance: PEGFILGRASTIM
     Indication: Product used for unknown indication
     Route: 042
     Dates: start: 20211021, end: 20211021
  26. PEGFILGRASTIM [Concomitant]
     Active Substance: PEGFILGRASTIM
     Dosage: 1 X 6 MILLIGRAM IN 1 DAY
     Route: 065
     Dates: start: 20211025, end: 20211025
  27. CANDESARTAN [Concomitant]
     Active Substance: CANDESARTAN
     Indication: Hypertension
     Dosage: 2 X 8 MILLIGRAM IN 1 DAY
     Route: 065
     Dates: start: 20210210
  28. HYDROMORPHONE HYDROCHLORIDE [Concomitant]
     Active Substance: HYDROMORPHONE HYDROCHLORIDE
     Indication: Back pain
     Dosage: 2 X 4 MILLIGRAM IN 1 DAY
     Route: 065
     Dates: start: 20210210
  29. Thiaminchloridhydrochloride [Concomitant]
     Indication: Hypertension
     Dosage: 1 X 100 MILLIGRAM IN 1 DAY /
     Route: 065
     Dates: start: 20210210
  30. Fluticasone 17-propionate /Formoterol fumarat-dihydrate [Concomitant]
     Indication: Chronic obstructive pulmonary disease
     Dosage: 4 X 1 DOSAGE FORM 1 IN DAY
     Route: 065
     Dates: start: 20210210
  31. Fluticasone 17-propionate /Formoterol fumarat-dihydrate [Concomitant]
     Indication: Asthma

REACTIONS (3)
  - Neutropenic sepsis [Fatal]
  - Extradural abscess [Not Recovered/Not Resolved]
  - Sepsis [Not Recovered/Not Resolved]

NARRATIVE: CASE EVENT DATE: 20210301
